FAERS Safety Report 18355842 (Version 1)
Quarter: 2020Q4

REPORT INFORMATION
  Report Type: Spontaneous
  Country: US (occurrence: US)
  Receive Date: 20201007
  Receipt Date: 20201007
  Transmission Date: 20210114
  Serious: Yes (Death)
  Sender: FDA-Public Use
  Company Number: None

PATIENT
  Age: 98 Year
  Sex: Female

DRUGS (1)
  1. VELTASSA [Suspect]
     Active Substance: PATIROMER
     Indication: HYPERKALAEMIA
     Dosage: ?          OTHER FREQUENCY:TWICE A WEEK;?
     Route: 048
     Dates: start: 20190801, end: 20200930

REACTIONS (1)
  - Death [None]

NARRATIVE: CASE EVENT DATE: 20201007
